FAERS Safety Report 18639873 (Version 1)
Quarter: 2020Q4

REPORT INFORMATION
  Report Type: Spontaneous
  Country: US (occurrence: US)
  Receive Date: 20201220
  Receipt Date: 20201220
  Transmission Date: 20210114
  Serious: Yes (Other)
  Sender: FDA-Public Use
  Company Number: US-PACIRA-201900385

PATIENT

DRUGS (2)
  1. LIDOCAINE. [Suspect]
     Active Substance: LIDOCAINE
     Indication: NERVE BLOCK
     Dosage: UNKNOWN DOSE
     Route: 042
  2. EXPAREL [Suspect]
     Active Substance: BUPIVACAINE
     Indication: NERVE BLOCK
     Dosage: UNKNOWN
     Route: 065

REACTIONS (3)
  - Local anaesthetic systemic toxicity [Unknown]
  - Seizure [Unknown]
  - Labelled drug-drug interaction medication error [Unknown]
